FAERS Safety Report 4738992-3 (Version None)
Quarter: 2005Q3

REPORT INFORMATION
  Report Type: 
  Country: None (occurrence: None)
  Receive Date: 20050801
  Receipt Date: 20050503
  Transmission Date: 20060218
  Serious: Yes (Life-Threatening)
  Sender: FDA-Public Use
  Company Number: 214237

PATIENT
  Age: 58 Year
  Sex: Female

DRUGS (3)
  1. RITUXAN [Suspect]
     Indication: FACTOR VIII DEFICIENCY
     Dosage: 375 MG/M2, INTRAVENOUS
     Route: 042
     Dates: start: 20050503, end: 20050503
  2. DIPHENHYDRAMINE (DIPHENHYDRAMINE NOS) [Concomitant]
  3. ACETAMINOPHEN [Concomitant]

REACTIONS (1)
  - BRONCHOSPASM [None]
